FAERS Safety Report 4439383-5 (Version None)
Quarter: 2004Q3

REPORT INFORMATION
  Report Type: 
  Country: None (occurrence: None)
  Receive Date: 20040728
  Receipt Date: 20040420
  Transmission Date: 20050211
  Serious: No
  Sender: FDA-Public Use
  Company Number: USA040465410

PATIENT
  Sex: Female

DRUGS (5)
  1. STRATTERA [Suspect]
     Dosage: 18 MG EVERY OTHER DAY
     Dates: start: 20040406
  2. RANITIDINE [Concomitant]
  3. SYNTHROID [Concomitant]
  4. XANAX [Concomitant]
  5. MULTIVITAMIN [Concomitant]

REACTIONS (3)
  - DRUG INEFFECTIVE [None]
  - MUSCULOSKELETAL STIFFNESS [None]
  - MYALGIA [None]
